FAERS Safety Report 9729150 (Version 1)
Quarter: 2013Q4

REPORT INFORMATION
  Report Type: Spontaneous
  Country: CZ (occurrence: CZ)
  Receive Date: 20131204
  Receipt Date: 20131204
  Transmission Date: 20140711
  Serious: Yes (Hospitalization, Other)
  Sender: FDA-Public Use
  Company Number: CZ-JNJFOC-20131115531

PATIENT
  Age: 50 Year
  Sex: Female

DRUGS (3)
  1. REMICADE [Suspect]
     Indication: CROHN^S DISEASE
     Route: 042
  2. REMICADE [Suspect]
     Indication: CROHN^S DISEASE
     Dosage: 3 INDUCTION DOSES
     Route: 042
     Dates: start: 201008, end: 201303
  3. AZATHIOPRINE [Concomitant]
     Route: 065
     Dates: start: 2001

REACTIONS (8)
  - Serositis [Recovering/Resolving]
  - Malnutrition [Recovering/Resolving]
  - Effusion [Recovering/Resolving]
  - Lupus-like syndrome [Recovering/Resolving]
  - Gastrointestinal disorder [Recovering/Resolving]
  - Normochromic normocytic anaemia [Recovering/Resolving]
  - Obstructive airways disorder [Recovering/Resolving]
  - Crohn^s disease [Recovering/Resolving]
